FAERS Safety Report 25636778 (Version 1)
Quarter: 2025Q3

REPORT INFORMATION
  Report Type: Spontaneous
  Country: US (occurrence: US)
  Receive Date: 20250804
  Receipt Date: 20250804
  Transmission Date: 20251021
  Serious: No
  Sender: ROCHE
  Company Number: US-ROCHE-10000352811

PATIENT
  Sex: Female

DRUGS (1)
  1. ACTEMRA ACTPEN [Suspect]
     Active Substance: TOCILIZUMAB
     Indication: Rheumatoid arthritis
     Dosage: FORM STRENGTH: 162MG/2ML
     Route: 058

REACTIONS (5)
  - Rheumatoid arthritis [Unknown]
  - Pain [Unknown]
  - Swelling [Unknown]
  - Rash [Unknown]
  - Headache [Unknown]
